FAERS Safety Report 4763978-2 (Version None)
Quarter: 2005Q3

REPORT INFORMATION
  Report Type: 
  Country: None (occurrence: None)
  Receive Date: 20050906
  Receipt Date: 20050824
  Transmission Date: 20060218
  Serious: Yes (Hospitalization)
  Sender: FDA-Public Use
  Company Number: 2005US001157

PATIENT
  Age: 42 Year
  Sex: Male

DRUGS (9)
  1. PROGRAF [Suspect]
     Indication: PROPHYLAXIS AGAINST TRANSPLANT REJECTION
     Dosage: 9.00 MG, BID, ORAL
     Route: 048
  2. MYCOPHENOLATE MOFETIL (MYCOPHENOLATE MOFETIL (MYOCOPHENOLATE MOFETIL0 [Suspect]
     Indication: PROPHYLAXIS AGAINST TRANSPLANT REJECTION
     Dosage: 1500.00 MG, BID, ORAL
     Route: 048
     Dates: end: 20050801
  3. PREDNISONE [Suspect]
     Indication: PROPHYLAXIS AGAINST TRANSPLANT REJECTION
     Dosage: 10.00 MG, UID/QD, ORAL
     Route: 048
     Dates: start: 20050105
  4. SODIUM BICARBONATE IN PLASTIC CONTAINER [Concomitant]
  5. NORVASC        /DEN/(AMLODIPINE BESILATE) [Concomitant]
  6. METOPROLOL TARTRATE [Concomitant]
  7. INSULIN [Concomitant]
  8. ASPIRIN [Concomitant]
  9. STARLIX [Concomitant]

REACTIONS (4)
  - DIABETIC KETOACIDOSIS [None]
  - DIARRHOEA [None]
  - NOCARDIOSIS [None]
  - PNEUMONIA [None]
